FAERS Safety Report 16435852 (Version 1)
Quarter: 2019Q2

REPORT INFORMATION
  Report Type: Spontaneous
  Country: US (occurrence: US)
  Receive Date: 20190614
  Receipt Date: 20190614
  Transmission Date: 20190711
  Serious: Yes (Other)
  Sender: FDA-Public Use
  Company Number: US-TEVA-2019-US-1060693

PATIENT
  Sex: Female
  Weight: 108 kg

DRUGS (18)
  1. GLUCOSAMINE CHONDROITIN [Concomitant]
     Active Substance: CHONDROITIN SULFATE (BOVINE)\GLUCOSAMINE HYDROCHLORIDE
     Route: 065
  2. AMARYL [Concomitant]
     Active Substance: GLIMEPIRIDE
     Route: 065
  3. DITROPAN XL [Concomitant]
     Active Substance: OXYBUTYNIN CHLORIDE
     Route: 065
  4. LEXAPRO [Concomitant]
     Active Substance: ESCITALOPRAM OXALATE
     Route: 065
  5. CALCIUM [Concomitant]
     Active Substance: CALCIUM
     Route: 065
  6. VITAMIN D3 [Concomitant]
     Active Substance: CHOLECALCIFEROL
     Route: 065
  7. METFORMIN [Concomitant]
     Active Substance: METFORMIN HYDROCHLORIDE
     Route: 065
  8. LISINOPRIL. [Concomitant]
     Active Substance: LISINOPRIL
     Route: 065
  9. ZETIA [Concomitant]
     Active Substance: EZETIMIBE
     Route: 065
  10. PROTONIX [Concomitant]
     Active Substance: PANTOPRAZOLE SODIUM
     Route: 065
  11. MULTIVITAMIN [Concomitant]
     Active Substance: VITAMINS
     Route: 065
  12. ZYRTEC [Concomitant]
     Active Substance: CETIRIZINE HYDROCHLORIDE
     Route: 065
  13. LANTUS [Concomitant]
     Active Substance: INSULIN GLARGINE
     Route: 065
  14. TRAZODONE [Concomitant]
     Active Substance: TRAZODONE HYDROCHLORIDE
     Route: 065
  15. FISH OIL [Concomitant]
     Active Substance: FISH OIL
     Route: 065
  16. QVAR REDIHALER [Suspect]
     Active Substance: BECLOMETHASONE DIPROPIONATE
     Indication: DYSPNOEA
     Dosage: 1 PUFF IN THE MORNING AND 1 PUFF IN THE EVENING
     Route: 065
     Dates: start: 20190530, end: 20190531
  17. MOBIC [Concomitant]
     Active Substance: MELOXICAM
     Route: 065
  18. COENZYME Q10 [Concomitant]
     Active Substance: UBIDECARENONE
     Route: 065

REACTIONS (8)
  - Screaming [Recovered/Resolved]
  - Homicidal ideation [Recovered/Resolved]
  - Mania [Recovered/Resolved]
  - Adverse drug reaction [Recovered/Resolved]
  - Anger [Recovered/Resolved]
  - Fear [Recovered/Resolved]
  - Suicidal ideation [Recovered/Resolved]
  - Abnormal behaviour [Recovered/Resolved]
